FAERS Safety Report 7410247-8 (Version None)
Quarter: 2011Q2

REPORT INFORMATION
  Report Type: 
  Country: None (occurrence: None)
  Receive Date: 20110412
  Receipt Date: 20110329
  Transmission Date: 20111010
  Serious: Yes (Life-Threatening, Hospitalization)
  Sender: FDA-Public Use
  Company Number: AT-CELGENEUS-009-21880-10110187

PATIENT
  Age: 16 Year
  Sex: Male
  Weight: 63 kg

DRUGS (4)
  1. AVASTIN [Concomitant]
     Indication: MEDULLOBLASTOMA
     Route: 048
     Dates: start: 20090201
  2. LIPSIN [Concomitant]
     Indication: MEDULLOBLASTOMA
     Dosage: 100 MILLIGRAM
     Route: 048
     Dates: start: 20090201
  3. REVLIMID [Suspect]
     Indication: MEDULLOBLASTOMA
     Dosage: 25 MILLIGRAM
     Route: 048
     Dates: start: 20100601
  4. CELEBREX [Concomitant]
     Indication: MEDULLOBLASTOMA
     Dosage: 600 MILLIGRAM
     Route: 048
     Dates: start: 20090201

REACTIONS (2)
  - RESPIRATORY FAILURE [None]
  - DEPRESSED LEVEL OF CONSCIOUSNESS [None]
